FAERS Safety Report 15622714 (Version 2)
Quarter: 2018Q4

REPORT INFORMATION
  Report Type: Report from Study
  Country: US (occurrence: US)
  Receive Date: 20181115
  Receipt Date: 20181220
  Transmission Date: 20190205
  Serious: Yes (Hospitalization)
  Sender: FDA-Public Use
  Company Number: US-ACTELION-A-NJ2018-180074

PATIENT
  Age: 73 Year
  Sex: Female
  Weight: 101.59 kg

DRUGS (4)
  1. INSULIN [Concomitant]
     Active Substance: INSULIN NOS
     Dosage: UNK
  2. GABAPENTIN. [Concomitant]
     Active Substance: GABAPENTIN
     Dosage: UNK
  3. OPSUMIT [Suspect]
     Active Substance: MACITENTAN
     Indication: PULMONARY ARTERIAL HYPERTENSION
     Dosage: 10 MG, QD
     Route: 048
     Dates: start: 201810
  4. TYLENOL EXTRA STRENGTH [Concomitant]
     Active Substance: ACETAMINOPHEN
     Dosage: UNK

REACTIONS (9)
  - Dysuria [Unknown]
  - Dizziness [Unknown]
  - Cardiac arrest [Unknown]
  - Pneumonia [Unknown]
  - Therapy non-responder [Unknown]
  - Renal failure [Unknown]
  - Pulmonary oedema [Unknown]
  - Diabetes mellitus inadequate control [Unknown]
  - Cardiac failure [Unknown]

NARRATIVE: CASE EVENT DATE: 201810
